FAERS Safety Report 10193021 (Version 2)
Quarter: 2014Q4

REPORT INFORMATION
  Report Type: Spontaneous
  Country: FR (occurrence: FR)
  Receive Date: 20140524
  Receipt Date: 20141121
  Transmission Date: 20150528
  Serious: Yes (Other)
  Sender: FDA-Public Use
  Company Number: FR-ABBVIE-14K-056-1238322-00

PATIENT
  Age: 47 Year
  Sex: Female

DRUGS (3)
  1. REYATAZ [Suspect]
     Active Substance: ATAZANAVIR SULFATE
     Indication: HIV INFECTION
     Route: 048
     Dates: start: 2009, end: 20140404
  2. NORVIR [Suspect]
     Active Substance: RITONAVIR
     Indication: HIV INFECTION
     Route: 048
     Dates: start: 2009, end: 20140404
  3. TRUVADA [Suspect]
     Active Substance: EMTRICITABINE\TENOFOVIR DISOPROXIL FUMARATE
     Indication: HIV INFECTION
     Route: 048
     Dates: start: 2009, end: 20140404

REACTIONS (10)
  - Renal colic [Recovered/Resolved]
  - Back pain [Unknown]
  - Upper respiratory tract infection [Unknown]
  - Ultrasound kidney abnormal [Unknown]
  - Back pain [Unknown]
  - Diarrhoea [Unknown]
  - Renal colic [Recovered/Resolved]
  - Bronchitis [Unknown]
  - Gastric infection [Unknown]
  - Dehydration [Unknown]

NARRATIVE: CASE EVENT DATE: 201302
